FAERS Safety Report 16588702 (Version 1)
Quarter: 2019Q3

REPORT INFORMATION
  Report Type: Spontaneous
  Country: US (occurrence: US)
  Receive Date: 20190718
  Receipt Date: 20190718
  Transmission Date: 20191004
  Serious: No
  Sender: FDA-Public Use
  Company Number: US-BRISTOL-MYERS SQUIBB COMPANY-BMS-2019-067871

PATIENT
  Age: 47 Year
  Sex: Female
  Weight: 92.97 kg

DRUGS (1)
  1. ORENCIA [Suspect]
     Active Substance: ABATACEPT
     Indication: PRODUCT USED FOR UNKNOWN INDICATION
     Dosage: 750MG
     Route: 065
     Dates: start: 20190701

REACTIONS (3)
  - Blood pressure increased [None]
  - Migraine [None]
  - Headache [None]

NARRATIVE: CASE EVENT DATE: 20190701
